FAERS Safety Report 15248088 (Version 1)
Quarter: 2018Q3

REPORT INFORMATION
  Report Type: Report from Study
  Country: EG (occurrence: EG)
  Receive Date: 20180807
  Receipt Date: 20180807
  Transmission Date: 20181010
  Serious: Yes (Other)
  Sender: FDA-Public Use
  Company Number: EG-ROCHE-2151602

PATIENT
  Sex: Male
  Weight: 69 kg

DRUGS (1)
  1. TECENTRIQ [Suspect]
     Active Substance: ATEZOLIZUMAB
     Indication: LUNG NEOPLASM MALIGNANT
     Route: 042
     Dates: start: 20180415

REACTIONS (4)
  - Weight decreased [Unknown]
  - General physical health deterioration [Unknown]
  - Drug ineffective [Unknown]
  - Disease progression [Unknown]
